FAERS Safety Report 25353193 (Version 4)
Quarter: 2025Q3

REPORT INFORMATION
  Report Type: Spontaneous
  Country: JP (occurrence: JP)
  Receive Date: 20250523
  Receipt Date: 20250702
  Transmission Date: 20251021
  Serious: No
  Sender: PFIZER
  Company Number: JP-PFIZER INC-PV202500060548

PATIENT
  Age: 13 Year
  Sex: Male
  Weight: 57 kg

DRUGS (3)
  1. NGENLA [Suspect]
     Active Substance: SOMATROGON-GHLA
     Indication: Growth hormone deficiency
     Dosage: 30 MG, WEEKLY
     Route: 058
     Dates: start: 20230403
  2. LEVOTHYROXINE SODIUM [Concomitant]
     Active Substance: LEVOTHYROXINE SODIUM
     Indication: Hypothyroidism
     Dosage: 70 UG, 1X/DAY
  3. CORTRIL [Concomitant]
     Active Substance: HYDROCORTISONE
     Indication: Adrenal insufficiency
     Dosage: 20 MG, 2X/DAY

REACTIONS (2)
  - Injection site pain [Recovered/Resolved]
  - Patient-device incompatibility [Unknown]

NARRATIVE: CASE EVENT DATE: 20230403
